FAERS Safety Report 10595522 (Version 1)
Quarter: 2014Q4

REPORT INFORMATION
  Report Type: Spontaneous
  Country: US (occurrence: US)
  Receive Date: 20141120
  Receipt Date: 20141120
  Transmission Date: 20150529
  Serious: No
  Sender: FDA-Public Use
  Company Number: US-PFIZER INC-2014317409

PATIENT
  Age: 1 Year
  Sex: Female

DRUGS (1)
  1. RAPAMUNE [Suspect]
     Active Substance: SIROLIMUS
     Indication: IMMUNOSUPPRESSION
     Dosage: 2 OZ FOLLOWED BY 4OZ, UNK
     Route: 048

REACTIONS (3)
  - Off label use [Unknown]
  - Lip swelling [Unknown]
  - Pyrexia [Unknown]
